FAERS Safety Report 5163165-2 (Version None)
Quarter: 2006Q4

REPORT INFORMATION
  Report Type: 
  Country: None (occurrence: None)
  Receive Date: 20061204
  Receipt Date: 20061121
  Transmission Date: 20070319
  Serious: Yes (Hospitalization, Disabling)
  Sender: FDA-Public Use
  Company Number: US-JNJFOC-20060105057

PATIENT
  Sex: Female
  Weight: 68.04 kg

DRUGS (5)
  1. ORTHO EVRA [Suspect]
     Indication: DRUG USE FOR UNKNOWN INDICATION
     Route: 062
  2. LEVAQUIN [Concomitant]
     Indication: URINARY TRACT INFECTION
  3. ZOLOFT [Concomitant]
  4. MIDRIN [Concomitant]
  5. PROLEX [Concomitant]

REACTIONS (3)
  - CAROTID ARTERY ANEURYSM [None]
  - CONVULSION [None]
  - SUBARACHNOID HAEMORRHAGE [None]
